FAERS Safety Report 9260532 (Version 1)
Quarter: 2013Q1

REPORT INFORMATION
  Report Type: Spontaneous
  Country: US (occurrence: None)
  Receive Date: 20121212
  Receipt Date: 20121212
  Transmission Date: 20140127
  Serious: No
  Sender: FDA-Public Use
  Company Number: 1210USA001025

PATIENT
  Age: 60 Year
  Sex: Male

DRUGS (3)
  1. RIBAVIRIN [Suspect]
     Indication: HEPATITIS C
     Dosage: UNK
     Dates: start: 20120915
  2. VICTRELIS [Suspect]
     Indication: HEPATITIS C
     Dosage: UNK
     Dates: start: 20121014
  3. PEGASYS [Suspect]
     Indication: HEPATITIS C
     Dosage: UNK
     Dates: start: 20120915

REACTIONS (3)
  - Rash [None]
  - Fatigue [None]
  - Drug ineffective [None]
